FAERS Safety Report 10559816 (Version 2)
Quarter: 2014Q4

REPORT INFORMATION
  Report Type: Spontaneous
  Country: US (occurrence: US)
  Receive Date: 20141103
  Receipt Date: 20141212
  Transmission Date: 20150529
  Serious: No
  Sender: FDA-Public Use
  Company Number: US-PFIZER INC-2014302180

PATIENT
  Age: 79 Year
  Sex: Male

DRUGS (11)
  1. DORZOLAMIDE/TIMOLOL [Concomitant]
     Dosage: 1 GTT, 2X/DAY (1-DROP BOTH EYES, MORNING + NIGHT)
  2. CHONDROITIN/GLUCOSAMINE [Concomitant]
     Dosage: 750 MG, 2X/DAY
  3. LYRICA [Suspect]
     Active Substance: PREGABALIN
     Indication: FIBROMYALGIA
     Dosage: 150 MG, 2X/DAY
     Dates: start: 2010
  4. LEVOTHYROXINE [Concomitant]
     Active Substance: LEVOTHYROXINE
     Dosage: 0.125 MG, 1X/DAY
  5. LYRICA [Suspect]
     Active Substance: PREGABALIN
     Dosage: 75 MG, UNK (SPREAD OUT OVER THE DAY) MORNING, NOON, SUPPER, BEDTIME
  6. OMEPRAZOLE. [Concomitant]
     Active Substance: OMEPRAZOLE
     Dosage: 20 MG, 2X/DAY
  7. FISH OIL [Concomitant]
     Active Substance: FISH OIL
     Dosage: 1200 MG, UNK
  8. TRAVOPROST Z [Concomitant]
     Dosage: 1 GTT, 1X/DAY(1 DROP BOTH EYES AT NIGHT)
  9. AMBIEN [Concomitant]
     Active Substance: ZOLPIDEM TARTRATE
     Indication: SLEEP DISORDER
     Dosage: UNK (? TO 1)
  10. SULINDAC. [Concomitant]
     Active Substance: SULINDAC
     Dosage: 150 MG, 2X/DAY
  11. OXYCODONE [Concomitant]
     Active Substance: OXYCODONE
     Dosage: UNK, AS NEEDED(5-OXYCODONE 5/325, ABOUT EVERY 4 WAKING HOURS, DEPENDENT OF WEATHER AND STRESS LEVEL)

REACTIONS (2)
  - Balance disorder [Recovered/Resolved]
  - Feeling abnormal [Recovered/Resolved]
